FAERS Safety Report 18303837 (Version 1)
Quarter: 2020Q3

REPORT INFORMATION
  Report Type: Spontaneous
  Country: US (occurrence: US)
  Receive Date: 20200924
  Receipt Date: 20200924
  Transmission Date: 20201103
  Serious: Yes (Hospitalization, Other)
  Sender: FDA-Public Use
  Company Number: US-RECKITT BENCKISER HEALTHCARE INT LIMITED-RB-93187-2020

PATIENT
  Age: 78 Year
  Sex: Female

DRUGS (1)
  1. PARACETAMOL [Suspect]
     Active Substance: ACETAMINOPHEN
     Indication: DECUBITUS ULCER
     Dosage: UNK, QD
     Route: 065

REACTIONS (3)
  - Metabolic acidosis [Unknown]
  - Product use in unapproved indication [Unknown]
  - Pyroglutamic acidosis [Unknown]
